FAERS Safety Report 22157395 (Version 1)
Quarter: 2023Q1

REPORT INFORMATION
  Report Type: Spontaneous
  Country: CN (occurrence: CN)
  Receive Date: 20230330
  Receipt Date: 20230330
  Transmission Date: 20230418
  Serious: Yes (Hospitalization, Other)
  Sender: FDA-Public Use
  Company Number: CN-002147023-NVSC2023CN070100

PATIENT
  Age: 73 Year
  Sex: Male
  Weight: 70 kg

DRUGS (8)
  1. ENTRESTO [Suspect]
     Active Substance: SACUBITRIL\VALSARTAN
     Indication: Arteriosclerosis coronary artery
     Dosage: 50 MG, QD
     Route: 048
     Dates: start: 20230226, end: 20230227
  2. RIVAROXABAN [Concomitant]
     Active Substance: RIVAROXABAN
     Indication: Arteriosclerosis coronary artery
     Dosage: 100 MG, QD
     Route: 048
     Dates: start: 20230226, end: 20230302
  3. RIVAROXABAN [Concomitant]
     Active Substance: RIVAROXABAN
     Indication: Anticoagulant therapy
  4. ISOSORBIDE MONONITRATE [Concomitant]
     Active Substance: ISOSORBIDE MONONITRATE
     Indication: Arteriosclerosis coronary artery
     Dosage: 30 MG, QD
     Route: 048
     Dates: start: 20230226, end: 20230228
  5. FUROSEMIDE [Concomitant]
     Active Substance: FUROSEMIDE
     Indication: Arteriosclerosis coronary artery
     Dosage: 20 MG, TID
     Route: 048
     Dates: start: 20230226, end: 20230227
  6. SPIRONOLACTONE [Concomitant]
     Active Substance: SPIRONOLACTONE
     Indication: Arteriosclerosis coronary artery
     Dosage: 20 MG, TID
     Route: 048
     Dates: start: 20230226, end: 20230227
  7. ATORVASTATIN CALCIUM [Concomitant]
     Active Substance: ATORVASTATIN CALCIUM
     Indication: Arteriosclerosis coronary artery
     Dosage: 20 MG, QD
     Route: 048
     Dates: start: 20230226, end: 20230302
  8. TRIMETAZIDINE [Concomitant]
     Active Substance: TRIMETAZIDINE
     Indication: Product used for unknown indication
     Dosage: UNK
     Route: 065

REACTIONS (6)
  - Hypotension [Not Recovered/Not Resolved]
  - Atrial fibrillation [Unknown]
  - Chest pain [Unknown]
  - Oedema peripheral [Unknown]
  - Prescribed underdose [Unknown]
  - Product use in unapproved indication [Unknown]

NARRATIVE: CASE EVENT DATE: 20230227
